FAERS Safety Report 6455602-8 (Version None)
Quarter: 2009Q4

REPORT INFORMATION
  Report Type: 
  Country: None (occurrence: None)
  Receive Date: 20091125
  Receipt Date: 20090904
  Transmission Date: 20100525
  Serious: No
  Sender: FDA-Public Use
  Company Number: US-ABBOTT-09P-163-0595418-00

PATIENT

DRUGS (5)
  1. SIMCOR [Suspect]
     Indication: BLOOD CHOLESTEROL INCREASED
     Dosage: 500/20MG EVERY NIGHT
     Route: 048
     Dates: start: 20090701
  2. WELLBUTRIN [Concomitant]
     Indication: DRUG USE FOR UNKNOWN INDICATION
  3. SINGULAIR [Concomitant]
     Indication: DRUG USE FOR UNKNOWN INDICATION
  4. AMBIEN [Concomitant]
     Indication: DRUG USE FOR UNKNOWN INDICATION
  5. HISTAVENT [Concomitant]
     Indication: DRUG USE FOR UNKNOWN INDICATION

REACTIONS (1)
  - SKIN BURNING SENSATION [None]
